FAERS Safety Report 10210925 (Version 3)
Quarter: 2014Q3

REPORT INFORMATION
  Report Type: Spontaneous
  Country: US (occurrence: US)
  Receive Date: 20140602
  Receipt Date: 20140902
  Transmission Date: 20150326
  Serious: Yes (Hospitalization)
  Sender: FDA-Public Use
  Company Number: US-BAYER-2014-082069

PATIENT
  Age: 31 Year
  Sex: Female
  Weight: 79.37 kg

DRUGS (8)
  1. YAZ [Suspect]
     Active Substance: DROSPIRENONE\ETHINYL ESTRADIOL
     Indication: CONTRACEPTION
     Dosage: UNK
     Dates: start: 2001, end: 2009
  2. GLUCOPHAGE [Concomitant]
     Active Substance: METFORMIN HYDROCHLORIDE
  3. FAMOTIDINE. [Concomitant]
     Active Substance: FAMOTIDINE
  4. ANTIVERT [Concomitant]
     Active Substance: MECLIZINE HYDROCHLORIDE
  5. HUMULIN NOS [Concomitant]
     Active Substance: INSULIN HUMAN
  6. VASOTEC [Concomitant]
     Active Substance: ENALAPRIL MALEATE
  7. METOPROLOL [Concomitant]
     Active Substance: METOPROLOL
  8. YASMIN [Suspect]
     Active Substance: DROSPIRENONE\ETHINYL ESTRADIOL
     Indication: CONTRACEPTION
     Dosage: UNK
     Dates: start: 2001, end: 2009

REACTIONS (6)
  - Deep vein thrombosis [None]
  - General physical health deterioration [None]
  - Communication disorder [None]
  - Emotional distress [None]
  - Pain [None]
  - Injury [None]

NARRATIVE: CASE EVENT DATE: 200911
